FAERS Safety Report 10059193 (Version 1)
Quarter: 2014Q2

REPORT INFORMATION
  Report Type: Spontaneous
  Country: US (occurrence: US)
  Receive Date: 20140404
  Receipt Date: 20140404
  Transmission Date: 20141212
  Serious: Yes (Hospitalization)
  Sender: FDA-Public Use
  Company Number: 2014SP001823

PATIENT
  Age: 52 Year
  Sex: Female

DRUGS (5)
  1. METHOTREXATE [Suspect]
     Indication: PRODUCT USED FOR UNKNOWN INDICATION
     Dosage: UNK, QWK
     Route: 048
     Dates: start: 201309, end: 2013
  2. ETANERCEPT [Suspect]
     Indication: PSORIASIS
     Dosage: 50 MG WEEKLY
     Route: 065
     Dates: start: 2012
  3. ETANERCEPT [Suspect]
     Indication: PSORIATIC ARTHROPATHY
     Dosage: 50 MG WEEKLY
     Route: 065
     Dates: start: 2012
  4. ETANERCEPT [Suspect]
     Indication: PSORIASIS
     Dates: start: 20140103
  5. ETANERCEPT [Suspect]
     Indication: PSORIATIC ARTHROPATHY
     Dates: start: 20140103

REACTIONS (15)
  - Intervertebral disc displacement [Recovered/Resolved]
  - Intervertebral disc protrusion [Recovered/Resolved]
  - Intervertebral disc disorder [Recovered/Resolved]
  - Sciatica [Recovered/Resolved]
  - Musculoskeletal discomfort [Not Recovered/Not Resolved]
  - Back pain [Not Recovered/Not Resolved]
  - Ear pain [Not Recovered/Not Resolved]
  - Oropharyngeal pain [Not Recovered/Not Resolved]
  - Asthenia [Not Recovered/Not Resolved]
  - Pruritus [Not Recovered/Not Resolved]
  - Pain [Not Recovered/Not Resolved]
  - Nausea [Recovered/Resolved]
  - Diarrhoea [Recovered/Resolved]
  - Gait disturbance [Recovered/Resolved]
  - Hypersensitivity [Not Recovered/Not Resolved]
